FAERS Safety Report 12716621 (Version 2)
Quarter: 2016Q3

REPORT INFORMATION
  Report Type: Spontaneous
  Country: FR (occurrence: FR)
  Receive Date: 20160906
  Receipt Date: 20160927
  Transmission Date: 20161109
  Serious: Yes (Hospitalization)
  Sender: FDA-Public Use
  Company Number: FR-PFIZER INC-2016401296

PATIENT
  Age: 66 Year
  Sex: Male

DRUGS (13)
  1. LOMUSTINE. [Suspect]
     Active Substance: LOMUSTINE
     Dosage: CYCLE 2
     Dates: start: 20141105
  2. LOMUSTINE. [Suspect]
     Active Substance: LOMUSTINE
     Dosage: CYCLE 3
     Dates: start: 20141204
  3. VANCOMYCIN [Concomitant]
     Active Substance: VANCOMYCIN
     Dosage: UNK
  4. NOXAFIL [Concomitant]
     Active Substance: POSACONAZOLE
     Dosage: UNK UNK, 2X/DAY
  5. TAZOBACTAM [Concomitant]
     Active Substance: TAZOBACTAM
     Dosage: UNK
  6. ARACYTINE [Suspect]
     Active Substance: CYTARABINE
     Indication: ACUTE MYELOID LEUKAEMIA
     Dosage: 90 MG, CYCLIC (TWICE DAILY (DAY 1 TO DAY 5))
     Route: 058
     Dates: start: 20140918, end: 20140922
  7. ARACYTINE [Suspect]
     Active Substance: CYTARABINE
     Dosage: CYCLE 2
     Dates: start: 20141105
  8. IDARUBICIN HCL [Suspect]
     Active Substance: IDARUBICIN HYDROCHLORIDE
     Dosage: CYCLE 3
     Dates: start: 20141204
  9. LOMUSTINE. [Suspect]
     Active Substance: LOMUSTINE
     Indication: ACUTE MYELOID LEUKAEMIA
     Dosage: 40 MG, CYCLIC (SINGLE ADMINISTRATION ON DAY 1)
     Route: 042
     Dates: start: 20140918
  10. ARACYTINE [Suspect]
     Active Substance: CYTARABINE
     Dosage: CYCLE 3
     Dates: start: 20141204
  11. IDARUBICIN HCL [Suspect]
     Active Substance: IDARUBICIN HYDROCHLORIDE
     Indication: ACUTE MYELOID LEUKAEMIA
     Dosage: 14 MG, CYCLIC (SINGLE ADMINISTRATION ON DAY 1)
     Route: 042
     Dates: start: 20140918
  12. IDARUBICIN HCL [Suspect]
     Active Substance: IDARUBICIN HYDROCHLORIDE
     Dosage: CYCLE 2
     Dates: start: 20141105
  13. TETRACAINE. [Concomitant]
     Active Substance: TETRACAINE
     Dosage: UNK

REACTIONS (6)
  - Pyrexia [Recovered/Resolved]
  - Chills [Unknown]
  - Dyspnoea exertional [Unknown]
  - Bone marrow failure [Recovered/Resolved]
  - Erysipelas [Recovered/Resolved]
  - Asthenia [Unknown]

NARRATIVE: CASE EVENT DATE: 20141002
